FAERS Safety Report 4562637-9 (Version None)
Quarter: 2005Q1

REPORT INFORMATION
  Report Type: 
  Country: None (occurrence: None)
  Receive Date: 20050127
  Receipt Date: 20050118
  Transmission Date: 20050727
  Serious: Yes (Death)
  Sender: FDA-Public Use
  Company Number: DE-JNJFOC-20050104037

PATIENT
  Sex: Female

DRUGS (3)
  1. TOPAMAX [Suspect]
     Route: 049
     Dates: start: 20040421
  2. TOPAMAX [Suspect]
     Route: 049
     Dates: start: 20040421
  3. TOPAMAX [Suspect]
     Indication: EPILEPSY
     Route: 049
     Dates: start: 20040421

REACTIONS (2)
  - DEATH [None]
  - DRUG INEFFECTIVE [None]
